FAERS Safety Report 9206907 (Version 2)
Quarter: 2013Q2

REPORT INFORMATION
  Report Type: Spontaneous
  Country: US (occurrence: US)
  Receive Date: 20130403
  Receipt Date: 20130415
  Transmission Date: 20140414
  Serious: Yes (Other)
  Sender: FDA-Public Use
  Company Number: US-SANOFI-AVENTIS-2013SA028568

PATIENT
  Age: 62 Year
  Sex: Female
  Weight: 86.18 kg

DRUGS (11)
  1. AUBAGIO [Suspect]
     Indication: MULTIPLE SCLEROSIS
     Dosage: EVERY MORNING
     Route: 048
     Dates: start: 20130219, end: 20130324
  2. BACLOFEN [Concomitant]
     Dosage: 8 A DAY
  3. TRAZODONE HYDROCHLORIDE [Concomitant]
  4. TIZANIDINE [Concomitant]
     Dosage: 4 MG, 1/2 TABLET 4 TIMES A DAY
  5. SERTRALINE HYDROCHLORIDE [Concomitant]
     Dosage: 1 A DAY
  6. DIAZEPAM [Concomitant]
  7. LIDODERM [Concomitant]
  8. HYDROCODONE [Concomitant]
  9. IBUPROFEN [Concomitant]
     Dosage: 3 A DAY AS NEEDED
  10. ALENDRONATE SODIUM [Concomitant]
  11. FAMPRIDINE [Concomitant]

REACTIONS (6)
  - Multiple sclerosis [Unknown]
  - General physical health deterioration [Unknown]
  - Drug ineffective [Unknown]
  - Gait disturbance [Recovered/Resolved]
  - Sinus disorder [Not Recovered/Not Resolved]
  - Pyrexia [Not Recovered/Not Resolved]
